FAERS Safety Report 5039514-2 (Version None)
Quarter: 2006Q2

REPORT INFORMATION
  Report Type: 
  Country: None (occurrence: None)
  Receive Date: 20060629
  Receipt Date: 20051114
  Transmission Date: 20061013
  Serious: Yes (Death)
  Sender: FDA-Public Use
  Company Number: GB-AMGEN-UK157914

PATIENT
  Age: 50 Year
  Sex: Male
  Weight: 113 kg

DRUGS (10)
  1. MIMPARA [Suspect]
     Indication: HYPERPARATHYROIDISM SECONDARY
     Route: 048
     Dates: start: 20050401
  2. QUININE SULFATE [Concomitant]
     Route: 048
  3. PRAVASTATIN [Concomitant]
     Route: 048
  4. RENAGEL [Concomitant]
     Route: 048
  5. ALLOPURINOL [Concomitant]
     Route: 048
  6. CALCIUM GLUCONATE [Concomitant]
     Route: 065
  7. LANSOPRAZOLE [Concomitant]
     Route: 048
  8. ARANESP [Concomitant]
     Route: 065
  9. CALCITRIOL [Concomitant]
     Route: 042
  10. VENOFER [Concomitant]
     Route: 065

REACTIONS (2)
  - CARDIAC DISORDER [None]
  - SUDDEN DEATH [None]
